FAERS Safety Report 4286953-3 (Version None)
Quarter: 2004Q1

REPORT INFORMATION
  Report Type: 
  Country: None (occurrence: None)
  Receive Date: 20040206
  Receipt Date: 20030908
  Transmission Date: 20041129
  Serious: Yes (Hospitalization, Disabling, Other)
  Sender: FDA-Public Use
  Company Number: WAES 0309USA00841

PATIENT
  Age: 50 Year
  Sex: Male
  Weight: 90 kg

DRUGS (20)
  1. MONOPRIL [Concomitant]
     Indication: HYPERTENSION
     Dates: start: 19970612, end: 20000801
  2. MONOPRIL [Concomitant]
     Dates: start: 20000901, end: 20001006
  3. PREVACID [Concomitant]
     Dates: end: 20000101
  4. PREVACID [Concomitant]
     Dates: start: 20000101, end: 20000101
  5. LEVAQUIN [Concomitant]
     Indication: SKIN LESION
     Dates: start: 20000901
  6. LEVAQUIN [Concomitant]
     Indication: FOLLICULITIS
     Dates: start: 20000901
  7. NAPROSYN [Concomitant]
     Indication: PAIN IN EXTREMITY
     Dates: start: 19881220, end: 20000826
  8. NAPROSYN [Concomitant]
     Indication: OSTEOARTHRITIS
     Dates: start: 19881220, end: 20000826
  9. ZANTAC [Concomitant]
  10. VIOXX [Suspect]
     Indication: PAIN IN EXTREMITY
     Route: 048
     Dates: start: 20000801, end: 20000829
  11. VIOXX [Suspect]
     Route: 048
     Dates: start: 20000830, end: 20000903
  12. VIOXX [Suspect]
     Route: 048
     Dates: start: 20001002, end: 20000101
  13. VIOXX [Suspect]
     Route: 048
     Dates: start: 20000904, end: 20001001
  14. VIOXX [Suspect]
     Indication: OSTEOARTHRITIS
     Route: 048
     Dates: start: 20000801, end: 20000829
  15. VIOXX [Suspect]
     Route: 048
     Dates: start: 20000830, end: 20000903
  16. VIOXX [Suspect]
     Route: 048
     Dates: start: 20001002, end: 20000101
  17. VIOXX [Suspect]
     Route: 048
     Dates: start: 20000904, end: 20001001
  18. ZOCOR [Concomitant]
     Route: 048
     Dates: start: 19980101, end: 20030930
  19. EFFEXOR [Concomitant]
  20. AMBIEN [Concomitant]
     Indication: INSOMNIA

REACTIONS (31)
  - AORTIC VALVE INCOMPETENCE [None]
  - BENIGN PROSTATIC HYPERPLASIA [None]
  - BLOOD GLUCOSE INCREASED [None]
  - BLOOD PRESSURE DIASTOLIC INCREASED [None]
  - CARPAL TUNNEL SYNDROME [None]
  - CEREBROVASCULAR ACCIDENT [None]
  - CERVICOBRACHIAL SYNDROME [None]
  - COLON ADENOMA [None]
  - CONSTIPATION [None]
  - CRANIAL NERVE PALSIES MULTIPLE [None]
  - DEPRESSION [None]
  - DIZZINESS [None]
  - DRY MOUTH [None]
  - DYSGEUSIA [None]
  - DYSPEPSIA [None]
  - EJECTION FRACTION DECREASED [None]
  - EPICONDYLITIS [None]
  - FACIAL PALSY [None]
  - FATIGUE [None]
  - HEADACHE [None]
  - HEMIPARESIS [None]
  - HYPERCHOLESTEROLAEMIA [None]
  - HYPERTENSION [None]
  - LOW DENSITY LIPOPROTEIN INCREASED [None]
  - MICTURITION URGENCY [None]
  - MITRAL VALVE INCOMPETENCE [None]
  - NEUROGENIC BLADDER [None]
  - RASH ERYTHEMATOUS [None]
  - TRIGGER FINGER [None]
  - URINARY INCONTINENCE [None]
  - ZINC DEFICIENCY [None]
